FAERS Safety Report 7864985-3 (Version None)
Quarter: 2011Q4

REPORT INFORMATION
  Report Type: 
  Country: None (occurrence: None)
  Receive Date: 20111028
  Receipt Date: 20111024
  Transmission Date: 20120403
  Serious: Yes (Hospitalization)
  Sender: FDA-Public Use
  Company Number: FR-B.I. PHARMACEUTICALS,INC./RIDGEFIELD-2011-FF-00004FF

PATIENT
  Sex: Female
  Weight: 78 kg

DRUGS (7)
  1. ACUPAN [Concomitant]
     Dosage: 60 MG
     Route: 042
     Dates: start: 20101216, end: 20101218
  2. ENALAPRIL MALEATE [Concomitant]
     Dosage: 20 MG
     Dates: start: 20101216
  3. BEFIZAL [Concomitant]
     Dosage: 200 MG
  4. PRADAXA [Suspect]
     Indication: THROMBOSIS PROPHYLAXIS
     Dosage: 150 MG
     Route: 048
     Dates: start: 20101216, end: 20101220
  5. IMOVANE [Concomitant]
  6. NAROPIN [Concomitant]
     Dosage: 2 MG/ML: 4ML/HOUR
     Route: 042
     Dates: start: 20101216, end: 20101218
  7. ACETAMINOPHEN [Concomitant]
     Dosage: 4000 MG

REACTIONS (2)
  - DEEP VEIN THROMBOSIS [None]
  - DRUG INEFFECTIVE [None]
